FAERS Safety Report 6523538-X (Version None)
Quarter: 2009Q4

REPORT INFORMATION
  Report Type: 
  Country: None (occurrence: None)
  Receive Date: 20091231
  Receipt Date: 20091221
  Transmission Date: 20100525
  Serious: Yes (Hospitalization)
  Sender: FDA-Public Use
  Company Number: PHHO2009DE15816

PATIENT
  Sex: Male
  Weight: 77 kg

DRUGS (1)
  1. SANDOSTATIN [Suspect]
     Indication: ACROMEGALY
     Dosage: CODE NOT BROKEN
     Route: 030
     Dates: start: 20091007

REACTIONS (2)
  - RASH [None]
  - VASCULITIS [None]
